FAERS Safety Report 13737637 (Version 2)
Quarter: 2018Q2

REPORT INFORMATION
  Report Type: Spontaneous
  Country: US (occurrence: US)
  Receive Date: 20170710
  Receipt Date: 20180627
  Transmission Date: 20180711
  Serious: Yes (Other)
  Sender: FDA-Public Use
  Company Number: US-SAOL THERAPEUTICS-2016SAO00770

PATIENT
  Age: 50 Year
  Sex: Male
  Weight: 81.63 kg

DRUGS (6)
  1. LIORESAL [Suspect]
     Active Substance: BACLOFEN
     Dosage: 106 ?G, \DAY
     Route: 037
  2. LIORESAL [Suspect]
     Active Substance: BACLOFEN
     Dosage: 92.06 ?G, \DAY
     Dates: start: 20170414
  3. LIORESAL [Suspect]
     Active Substance: BACLOFEN
     Dosage: 91.17 ?G, \DAY
     Route: 037
     Dates: start: 20170608
  4. LIORESAL [Suspect]
     Active Substance: BACLOFEN
     Dosage: 100 UNK, UNK
  5. LIORESAL [Suspect]
     Active Substance: BACLOFEN
     Indication: MUSCLE SPASTICITY
     Dosage: 87 ?G, \DAY
     Route: 037
  6. LIORESAL [Suspect]
     Active Substance: BACLOFEN
     Dosage: 96 ?G, \DAY

REACTIONS (10)
  - Urinary incontinence [Unknown]
  - Hypertonia [Unknown]
  - Anal incontinence [Unknown]
  - Device dislocation [Unknown]
  - Hyperhidrosis [Unknown]
  - Discomfort [Recovered/Resolved]
  - Hypersensitivity [Unknown]
  - Drug withdrawal syndrome [Recovered/Resolved]
  - Therapy non-responder [Unknown]
  - Medication error [Unknown]

NARRATIVE: CASE EVENT DATE: 20150309
